FAERS Safety Report 21185058 (Version 1)
Quarter: 2022Q3

REPORT INFORMATION
  Report Type: Spontaneous
  Country: JP (occurrence: JP)
  Receive Date: 20220808
  Receipt Date: 20220808
  Transmission Date: 20221027
  Serious: Yes (Other)
  Sender: FDA-Public Use
  Company Number: JP-PFIZER INC-PV202200036455

PATIENT
  Weight: 70 kg

DRUGS (2)
  1. FOSPHENYTOIN SODIUM [Suspect]
     Active Substance: FOSPHENYTOIN SODIUM
     Indication: Status epilepticus
     Dosage: 2 VIALS (1500 MG)
     Route: 042
  2. FOSPHENYTOIN SODIUM [Suspect]
     Active Substance: FOSPHENYTOIN SODIUM
     Dosage: 0.5 VIALS (375 MG)
     Route: 042

REACTIONS (2)
  - Therapeutic product effect incomplete [Unknown]
  - Anticonvulsant drug level decreased [Unknown]
